FAERS Safety Report 9322922 (Version 1)
Quarter: 2013Q2

REPORT INFORMATION
  Report Type: Spontaneous
  Country: NL (occurrence: NL)
  Receive Date: 20130601
  Receipt Date: 20130601
  Transmission Date: 20140414
  Serious: Yes (Other)
  Sender: FDA-Public Use
  Company Number: NL-US-EMD SERONO, INC.-7133530

PATIENT
  Age: 41 Year
  Sex: Female
  Weight: 58 kg

DRUGS (3)
  1. REBIF [Suspect]
     Indication: MULTIPLE SCLEROSIS
     Route: 058
     Dates: start: 20120416
  2. SERETIDE [Concomitant]
     Indication: ASTHMA
  3. PARACETAMOL [Concomitant]
     Indication: PREMEDICATION

REACTIONS (5)
  - Pneumonia [Unknown]
  - Sleep disorder [Unknown]
  - Influenza like illness [Recovering/Resolving]
  - Headache [Not Recovered/Not Resolved]
  - Myalgia [Unknown]
